FAERS Safety Report 8803105 (Version 2)
Quarter: 2012Q4

REPORT INFORMATION
  Report Type: 
  Country: BR (occurrence: BR)
  Receive Date: 20120924
  Receipt Date: 20121022
  Transmission Date: 20130627
  Serious: Yes (Other)
  Sender: FDA-Public Use
  Company Number: BR-PFIZER INC-2012233427

PATIENT
  Age: 54 Year
  Sex: Female

DRUGS (8)
  1. LYRICA [Suspect]
     Indication: NEURALGIA
     Dosage: 2 capsule of 75 mg, 1x/day, at night
     Dates: start: 201205
  2. LYRICA [Suspect]
     Indication: PAIN
  3. TRAMAL [Suspect]
     Indication: PAIN
     Dosage: 1 capsule of 50 mg, 1x/day
     Route: 065
     Dates: start: 2011
  4. TYLEX [Suspect]
     Indication: PAIN
     Dosage: UNK
     Dates: start: 201204
  5. OMEPRAZOL [Concomitant]
     Indication: GASTRITIS
     Dosage: UNK
  6. DICLOFENAC DIETHYLAMINE [Concomitant]
     Indication: PAIN
  7. TRAMADOL [Concomitant]
     Indication: PAIN
     Dosage: 4 tablets daily
     Dates: start: 2010
  8. RIVOTRIL [Concomitant]
     Indication: SLEEP DISORDER

REACTIONS (17)
  - Monoplegia [Not Recovered/Not Resolved]
  - Nervous system disorder [Not Recovered/Not Resolved]
  - Sensory loss [Not Recovered/Not Resolved]
  - Abasia [Not Recovered/Not Resolved]
  - Neuralgia [Unknown]
  - Diarrhoea [Not Recovered/Not Resolved]
  - Liver disorder [Not Recovered/Not Resolved]
  - Anxiety [Not Recovered/Not Resolved]
  - Retching [Not Recovered/Not Resolved]
  - Dry mouth [Not Recovered/Not Resolved]
  - Dyspepsia [Not Recovered/Not Resolved]
  - Balance disorder [Not Recovered/Not Resolved]
  - Fall [Not Recovered/Not Resolved]
  - Asthenia [Not Recovered/Not Resolved]
  - Swelling [None]
  - Dysstasia [None]
  - Grip strength decreased [None]
